FAERS Safety Report 7592830-2 (Version None)
Quarter: 2011Q3

REPORT INFORMATION
  Report Type: 
  Country: None (occurrence: None)
  Receive Date: 20110706
  Receipt Date: 20110701
  Transmission Date: 20111222
  Serious: No
  Sender: FDA-Public Use
  Company Number: US-PFIZER INC-2011148076

PATIENT
  Sex: Female
  Weight: 54.422 kg

DRUGS (2)
  1. PAMPRIN TAB [Concomitant]
  2. ADVIL LIQUI-GELS [Suspect]
     Indication: DYSMENORRHOEA
     Dosage: 200 MG, AS NEEDED
     Dates: start: 20110701, end: 20110701

REACTIONS (3)
  - NAUSEA [None]
  - VOMITING [None]
  - DYSMENORRHOEA [None]
